FAERS Safety Report 17152356 (Version 1)
Quarter: 2019Q4

REPORT INFORMATION
  Report Type: Spontaneous
  Country: NL (occurrence: NL)
  Receive Date: 20191213
  Receipt Date: 20191213
  Transmission Date: 20200122
  Serious: Yes (Hospitalization)
  Sender: FDA-Public Use
  Company Number: NL-MYLANLABS-2019M1122443

PATIENT
  Age: 69 Year
  Sex: Female
  Weight: 82 kg

DRUGS (10)
  1. PICOPREP [Concomitant]
     Active Substance: ANHYDROUS CITRIC ACID\MAGNESIUM OXIDE\SODIUM PICOSULFATE
     Dosage: 16 GRAM, QD (1DD1)/POWDER FOR DRINK
  2. OXYCODON [Suspect]
     Active Substance: OXYCODONE
     Indication: HERPES ZOSTER
     Dosage: 5 MILLIGRAM, BID (2DD5MG)
     Route: 048
     Dates: start: 20190719, end: 20190720
  3. CORTIMENT                          /00028601/ [Concomitant]
     Active Substance: HYDROCORTISONE
     Dosage: 9 MILLIGRAM, QD (1DD1)
  4. VALACICLOVIR [Suspect]
     Active Substance: VALACYCLOVIR HYDROCHLORIDE
     Indication: HERPES ZOSTER
     Dosage: 1000 MILLIGRAM, Q8H (3DD1000MG)
     Route: 048
     Dates: start: 20190719, end: 20190720
  5. HYDROCHLOORTHIAZIDE [Concomitant]
     Active Substance: HYDROCHLOROTHIAZIDE
     Dosage: 12 MILLIGRAM, QD (1DD1)
  6. BISACODYL. [Concomitant]
     Active Substance: BISACODYL
     Dosage: 10 MILLIGRAM, QD (1DD10MG)
  7. COLECALCIFEROL [Concomitant]
     Active Substance: CHOLECALCIFEROL
     Dosage: 800 INTERNATIONAL UNIT, QD(1DD1)
  8. URSODEOXYCHOLZUUR [Concomitant]
     Dosage: 250 MILLIGRAM, QD (1DD1)
  9. LEVOTHYROXINE. [Concomitant]
     Active Substance: LEVOTHYROXINE
     Dosage: 50 MICROGRAM, QD (1DD1)
  10. LISINOPRIL. [Concomitant]
     Active Substance: LISINOPRIL
     Dosage: 5 MILLIGRAM, QD (1DD1)

REACTIONS (5)
  - Pruritus [Recovering/Resolving]
  - Swollen tongue [Recovering/Resolving]
  - Dyspnoea [Recovering/Resolving]
  - Swelling [Recovering/Resolving]
  - Pharyngeal swelling [Recovering/Resolving]

NARRATIVE: CASE EVENT DATE: 20190719
